FAERS Safety Report 10226801 (Version 1)
Quarter: 2014Q2

REPORT INFORMATION
  Report Type: Spontaneous
  Country: NL (occurrence: NL)
  Receive Date: 20140610
  Receipt Date: 20140610
  Transmission Date: 20141212
  Serious: Yes (Other)
  Sender: FDA-Public Use
  Company Number: NL-009507513-1406NLD003400

PATIENT
  Sex: Male
  Weight: 80 kg

DRUGS (2)
  1. SIMVASTATIN [Suspect]
     Indication: HYPERLIPIDAEMIA
     Dosage: ONCE A DAY 1 PIECE
     Route: 048
     Dates: start: 20030630
  2. GEMFIBROZIL [Interacting]
     Indication: HYPERLIPIDAEMIA
     Dosage: ONCE A DAY 1 PIECE
     Route: 048
     Dates: start: 20090828

REACTIONS (2)
  - Drug interaction [Not Recovered/Not Resolved]
  - Dysgeusia [Not Recovered/Not Resolved]
